FAERS Safety Report 9254004 (Version 1)
Quarter: 2013Q2

REPORT INFORMATION
  Report Type: Spontaneous
  Country: GB (occurrence: None)
  Receive Date: 20130418
  Receipt Date: 20130418
  Transmission Date: 20140414
  Serious: Yes (Disabling)
  Sender: FDA-Public Use
  Company Number: AUR-APL-2013-03049

PATIENT
  Age: 54 Year
  Sex: Male
  Weight: 107 kg

DRUGS (3)
  1. RAMIPRIL (RAMIPRIL) [Suspect]
     Indication: HYPERTENSION
     Route: 048
     Dates: start: 20121231, end: 20130214
  2. ASPIRIN (ACETYLSALICYLIC ACID) [Concomitant]
  3. SIMVASTATIN (SIMVASTATIN) [Concomitant]

REACTIONS (2)
  - Hiccups [None]
  - Disability [None]
